FAERS Safety Report 5305247-8 (Version None)
Quarter: 2007Q2

REPORT INFORMATION
  Report Type: 
  Country: None (occurrence: None)
  Receive Date: 20070424
  Receipt Date: 20070417
  Transmission Date: 20071010
  Serious: Yes (Other)
  Sender: FDA-Public Use
  Company Number: US-JNJFOC-20070304686

PATIENT
  Sex: Male
  Weight: 74.84 kg

DRUGS (6)
  1. REMICADE [Suspect]
     Dosage: ONE DOSE ON AN UNSPECIFIED DATE.
     Route: 042
  2. REMICADE [Suspect]
     Indication: RHEUMATOID ARTHRITIS
     Route: 042
  3. MTX [Concomitant]
  4. PREDNISONE TAB [Concomitant]
  5. PLAQUENIL [Concomitant]
  6. FLOMAX [Concomitant]

REACTIONS (4)
  - DRUG INEFFECTIVE [None]
  - HYPOAESTHESIA [None]
  - MUSCULAR WEAKNESS [None]
  - RHEUMATOID ARTHRITIS [None]
